FAERS Safety Report 4339315-4 (Version None)
Quarter: 2004Q2

REPORT INFORMATION
  Report Type: 
  Country: None (occurrence: None)
  Receive Date: 20040412
  Receipt Date: 19951222
  Transmission Date: 20050107
  Serious: Yes (Death, Life-Threatening, Hospitalization)
  Sender: FDA-Public Use
  Company Number: WAES 96031194

PATIENT
  Age: 17 Day
  Sex: Male

DRUGS (4)
  1. INDOCIN I.V.     (INDOMETHACIN SODIUIM TRIHYDRATE) [Suspect]
     Indication: PATENT DUCTUS ARTERIOSUS
     Dosage: IV
     Route: 042
     Dates: start: 19950901, end: 19950909
  2. AMPICILLIN [Concomitant]
  3. CEFOTAXIME [Concomitant]
  4. WHOLE BLOOD [Concomitant]

REACTIONS (8)
  - ABDOMINAL DISTENSION [None]
  - ASCITES [None]
  - ASPARTATE AMINOTRANSFERASE INCREASED [None]
  - ASTHENIA [None]
  - BACTERIAL SEPSIS [None]
  - INTESTINAL ISCHAEMIA [None]
  - INTESTINAL PERFORATION [None]
  - RENAL IMPAIRMENT [None]
